FAERS Safety Report 24058115 (Version 1)
Quarter: 2024Q3

REPORT INFORMATION
  Report Type: Spontaneous
  Country: FR (occurrence: FR)
  Receive Date: 20240707
  Receipt Date: 20240707
  Transmission Date: 20241016
  Serious: Yes (Other)
  Sender: NOVARTIS
  Company Number: None

PATIENT
  Age: 47 Year
  Sex: Female
  Weight: 102 kg

DRUGS (1)
  1. COSENTYX [Suspect]
     Active Substance: SECUKINUMAB
     Indication: Psoriasis
     Dosage: 300 MG TOUS LES 15 JOURS PUIS DIMINUTION ? 150 MG TOUS LES 15 J
     Route: 058
     Dates: start: 2021

REACTIONS (1)
  - Alveolar osteitis [Recovered/Resolved]

NARRATIVE: CASE EVENT DATE: 20231201
